FAERS Safety Report 4588174-3 (Version None)
Quarter: 2005Q1

REPORT INFORMATION
  Report Type: 
  Country: None (occurrence: None)
  Receive Date: 20050221
  Receipt Date: 20050209
  Transmission Date: 20050727
  Serious: Yes (Other)
  Sender: FDA-Public Use
  Company Number: US-GLAXOSMITHKLINE-A0546104A

PATIENT
  Sex: Female

DRUGS (1)
  1. LAMICTAL [Suspect]

REACTIONS (3)
  - CONVULSION [None]
  - DRUG EXPOSURE DURING PREGNANCY [None]
  - NORMAL DELIVERY [None]
